FAERS Safety Report 21634718 (Version 5)
Quarter: 2025Q2

REPORT INFORMATION
  Report Type: Spontaneous
  Country: CA (occurrence: CA)
  Receive Date: 20221123
  Receipt Date: 20250501
  Transmission Date: 20250716
  Serious: Yes (Other)
  Sender: ALEXION PHARMACEUTICALS
  Company Number: 2021A859530

PATIENT
  Age: 53 Year

DRUGS (107)
  1. BUDESONIDE [Suspect]
     Active Substance: BUDESONIDE
     Indication: Colitis ulcerative
     Dosage: 1 DOSAGE FORM, QD
  2. BUDESONIDE [Suspect]
     Active Substance: BUDESONIDE
     Dosage: 1 DOSAGE FORM, QD
  3. BUDESONIDE [Suspect]
     Active Substance: BUDESONIDE
     Dosage: 4 DOSAGE FORM, QD
  4. BUDESONIDE [Suspect]
     Active Substance: BUDESONIDE
     Dosage: 8 DOSAGE FORM, QD
  5. DAPAGLIFLOZIN [Suspect]
     Active Substance: DAPAGLIFLOZIN
  6. ESOMEPRAZOLE [Suspect]
     Active Substance: ESOMEPRAZOLE
  7. ROSUVASTATIN [Suspect]
     Active Substance: ROSUVASTATIN
  8. ROSUVASTATIN CALCIUM [Suspect]
     Active Substance: ROSUVASTATIN CALCIUM
  9. AZD-1222 [Suspect]
     Active Substance: AZD-1222
     Indication: COVID-19 immunisation
  10. FELODIPINE [Suspect]
     Active Substance: FELODIPINE
     Dosage: 3 MILLIGRAM, QD
  11. ASACOL [Suspect]
     Active Substance: MESALAMINE
     Indication: Colitis ulcerative
     Dosage: 6 DOSAGE FORM, QD
  12. ASACOL [Suspect]
     Active Substance: MESALAMINE
  13. ASACOL [Suspect]
     Active Substance: MESALAMINE
  14. ASACOL [Suspect]
     Active Substance: MESALAMINE
     Dosage: 4.8 GRAM, QD
  15. ASACOL [Suspect]
     Active Substance: MESALAMINE
     Dosage: 1 DOSAGE FORM, QD
  16. ASACOL [Suspect]
     Active Substance: MESALAMINE
     Dosage: 2.4 GRAM, QD
  17. ASACOL [Suspect]
     Active Substance: MESALAMINE
     Dosage: 3 DOSAGE FORM, QD
  18. ASACOL [Suspect]
     Active Substance: MESALAMINE
     Dosage: 12 DOSAGE FORM, QD
  19. ASACOL [Suspect]
     Active Substance: MESALAMINE
     Dosage: 3 GRAM, QD
  20. ASACOL [Suspect]
     Active Substance: MESALAMINE
     Dosage: 50 MILLIGRAM, QD
  21. CORTATE [Suspect]
     Active Substance: HYDROCORTISONE
     Indication: Product used for unknown indication
  22. CORTATE [Suspect]
     Active Substance: HYDROCORTISONE
     Indication: Colitis ulcerative
  23. CORTIFOAM [Suspect]
     Active Substance: HYDROCORTISONE ACETATE
     Indication: Colitis ulcerative
  24. CORTIFOAM [Suspect]
     Active Substance: HYDROCORTISONE ACETATE
     Dosage: 1 DOSAGE FORM, QD
  25. CORTIFOAM [Suspect]
     Active Substance: HYDROCORTISONE ACETATE
  26. CORTIFOAM [Suspect]
     Active Substance: HYDROCORTISONE ACETATE
  27. CORTIFOAM [Suspect]
     Active Substance: HYDROCORTISONE ACETATE
  28. CORTIFOAM [Suspect]
     Active Substance: HYDROCORTISONE ACETATE
     Dosage: 1 DOSAGE FORM, QD
  29. CORTIFOAM [Suspect]
     Active Substance: HYDROCORTISONE ACETATE
     Dosage: 1 DOSAGE FORM, QD
  30. ENTYVIO [Suspect]
     Active Substance: VEDOLIZUMAB
     Indication: Colitis ulcerative
  31. ENTYVIO [Suspect]
     Active Substance: VEDOLIZUMAB
     Indication: Deep vein thrombosis
  32. ENTYVIO [Suspect]
     Active Substance: VEDOLIZUMAB
     Dosage: 1 DOSAGE FORM, QD
  33. ENTYVIO [Suspect]
     Active Substance: VEDOLIZUMAB
  34. ENTYVIO [Suspect]
     Active Substance: VEDOLIZUMAB
  35. ENTYVIO [Suspect]
     Active Substance: VEDOLIZUMAB
  36. ENTYVIO [Suspect]
     Active Substance: VEDOLIZUMAB
  37. ENTYVIO [Suspect]
     Active Substance: VEDOLIZUMAB
  38. ENTYVIO [Suspect]
     Active Substance: VEDOLIZUMAB
  39. INFLIXIMAB [Suspect]
     Active Substance: INFLIXIMAB
     Indication: Colitis ulcerative
  40. INFLIXIMAB [Suspect]
     Active Substance: INFLIXIMAB
     Indication: Crohn^s disease
  41. INFLIXIMAB [Suspect]
     Active Substance: INFLIXIMAB
  42. INFLIXIMAB [Suspect]
     Active Substance: INFLIXIMAB
  43. INFLIXIMAB [Suspect]
     Active Substance: INFLIXIMAB
  44. INFLIXIMAB [Suspect]
     Active Substance: INFLIXIMAB
  45. INFLIXIMAB [Suspect]
     Active Substance: INFLIXIMAB
  46. INFLIXIMAB [Suspect]
     Active Substance: INFLIXIMAB
  47. PREDNISONE [Suspect]
     Active Substance: PREDNISONE
     Indication: Colitis ulcerative
  48. MESALAMINE [Suspect]
     Active Substance: MESALAMINE
     Indication: Colitis ulcerative
     Dosage: UNK, QD
  49. VEDOLIZUMAB [Suspect]
     Active Substance: VEDOLIZUMAB
     Indication: Colitis ulcerative
  50. VEDOLIZUMAB [Suspect]
     Active Substance: VEDOLIZUMAB
  51. VEDOLIZUMAB [Suspect]
     Active Substance: VEDOLIZUMAB
     Dosage: 1 DOSAGE FORM, QD
  52. WARFARIN [Suspect]
     Active Substance: WARFARIN
     Indication: Deep vein thrombosis
  53. WARFARIN [Suspect]
     Active Substance: WARFARIN
     Indication: Crohn^s disease
  54. MESALAMINE [Suspect]
     Active Substance: MESALAMINE
     Indication: Colitis ulcerative
  55. MESALAMINE [Suspect]
     Active Substance: MESALAMINE
     Indication: Colitis ulcerative
  56. MESALAMINE [Suspect]
     Active Substance: MESALAMINE
     Indication: Crohn^s disease
  57. MESALAMINE [Suspect]
     Active Substance: MESALAMINE
     Indication: Deep vein thrombosis
     Dosage: 1 DOSAGE FORM, QD
  58. MESALAMINE [Suspect]
     Active Substance: MESALAMINE
  59. MESALAMINE [Suspect]
     Active Substance: MESALAMINE
     Dosage: 3 GRAM, QD
  60. MESALAMINE [Suspect]
     Active Substance: MESALAMINE
     Dosage: 4.8 MILLIGRAM, QD
  61. MESALAMINE [Suspect]
     Active Substance: MESALAMINE
     Dosage: 2.4 GRAM, QD
  62. MESALAMINE [Suspect]
     Active Substance: MESALAMINE
     Dosage: 3 DOSAGE FORM, BID
  63. MESALAMINE [Suspect]
     Active Substance: MESALAMINE
  64. MESALAMINE [Suspect]
     Active Substance: MESALAMINE
  65. MESALAMINE [Suspect]
     Active Substance: MESALAMINE
  66. MESALAMINE [Suspect]
     Active Substance: MESALAMINE
  67. MESALAMINE [Suspect]
     Active Substance: MESALAMINE
  68. MESALAMINE [Suspect]
     Active Substance: MESALAMINE
  69. MESALAMINE [Suspect]
     Active Substance: MESALAMINE
  70. MESALAMINE [Suspect]
     Active Substance: MESALAMINE
  71. MESALAMINE [Suspect]
     Active Substance: MESALAMINE
  72. AMINOSALICYLIC ACID [Suspect]
     Active Substance: AMINOSALICYLIC ACID
     Indication: Colitis ulcerative
  73. HYDROCORTISONE [Suspect]
     Active Substance: HYDROCORTISONE
     Indication: Colitis ulcerative
  74. HYDROCORTISONE [Suspect]
     Active Substance: HYDROCORTISONE
     Indication: Crohn^s disease
  75. HYDROCORTISONE [Suspect]
     Active Substance: HYDROCORTISONE
     Dosage: 8 DOSAGE FORM, QD
  76. HYDROCORTISONE [Suspect]
     Active Substance: HYDROCORTISONE
     Dosage: 3 DOSAGE FORM, BID
  77. HYDROCORTISONE [Suspect]
     Active Substance: HYDROCORTISONE
  78. HYDROCORTISONE [Suspect]
     Active Substance: HYDROCORTISONE
  79. HYDROCORTISONE [Suspect]
     Active Substance: HYDROCORTISONE
  80. HYDROCORTISONE [Suspect]
     Active Substance: HYDROCORTISONE
  81. HYDROCORTISONE [Suspect]
     Active Substance: HYDROCORTISONE
  82. HYDROCORTISONE [Suspect]
     Active Substance: HYDROCORTISONE
     Dosage: 1 DOSAGE FORM, QD
  83. HYDROCORTISONE [Suspect]
     Active Substance: HYDROCORTISONE
     Dosage: 1 DOSAGE FORM, QD
  84. HYDROCORTISONE ACETATE [Suspect]
     Active Substance: HYDROCORTISONE ACETATE
     Indication: Colitis ulcerative
     Dosage: 8 DOSAGE FORM, QD
  85. HYDROCORTISONE ACETATE [Suspect]
     Active Substance: HYDROCORTISONE ACETATE
     Indication: Crohn^s disease
     Dosage: 1 DOSAGE FORM, Q8H
  86. HYDROCORTISONE ACETATE [Suspect]
     Active Substance: HYDROCORTISONE ACETATE
  87. HYDROCORTISONE ACETATE [Suspect]
     Active Substance: HYDROCORTISONE ACETATE
     Dosage: UNK UNK, Q8H
  88. HYDROCORTISONE ACETATE [Suspect]
     Active Substance: HYDROCORTISONE ACETATE
     Dosage: UNK UNK, Q8H
  89. HYDROCORTISONE ACETATE [Suspect]
     Active Substance: HYDROCORTISONE ACETATE
     Dosage: UNK UNK, Q8H
  90. HYDROCORTISONE SODIUM SUCCINATE [Suspect]
     Active Substance: HYDROCORTISONE SODIUM SUCCINATE
     Indication: Colitis ulcerative
  91. ADALIMUMAB [Suspect]
     Active Substance: ADALIMUMAB
     Indication: Colitis ulcerative
  92. ADALIMUMAB [Suspect]
     Active Substance: ADALIMUMAB
     Indication: Deep vein thrombosis
  93. SULFASALAZINE [Concomitant]
     Active Substance: SULFASALAZINE
     Indication: Colitis ulcerative
  94. HUMIRA [Concomitant]
     Active Substance: ADALIMUMAB
     Indication: Colitis ulcerative
  95. HUMIRA [Concomitant]
     Active Substance: ADALIMUMAB
     Indication: Deep vein thrombosis
  96. METHOTREXATE [Concomitant]
     Active Substance: METHOTREXATE
  97. ALBENDAZOLE [Suspect]
     Active Substance: ALBENDAZOLE
  98. HYDROCORTISONE ACETATE [Suspect]
     Active Substance: HYDROCORTISONE ACETATE
  99. EPINEPHRINE HYDROCHLORIDE [Suspect]
     Active Substance: EPINEPHRINE HYDROCHLORIDE
  100. ESCITALOPRAM [Suspect]
     Active Substance: ESCITALOPRAM OXALATE
  101. FUROSEMIDE [Suspect]
     Active Substance: FUROSEMIDE
  102. GABAPENTIN [Suspect]
     Active Substance: GABAPENTIN
  103. LEVOTHYROXINE SODIUM [Suspect]
     Active Substance: LEVOTHYROXINE SODIUM
  104. MEBEVERINE HYDROCHLORIDE [Suspect]
     Active Substance: MEBEVERINE HYDROCHLORIDE
  105. METFORMIN [Suspect]
     Active Substance: METFORMIN HYDROCHLORIDE
  106. ACETAMINOPHEN [Concomitant]
     Active Substance: ACETAMINOPHEN
  107. ATORVASTATIN CALCIUM [Concomitant]
     Active Substance: ATORVASTATIN CALCIUM

REACTIONS (57)
  - Abdominal discomfort [Not Recovered/Not Resolved]
  - Cerebrovascular accident [Not Recovered/Not Resolved]
  - Deep vein thrombosis [Not Recovered/Not Resolved]
  - Inappropriate schedule of product administration [Not Recovered/Not Resolved]
  - Loss of personal independence in daily activities [Not Recovered/Not Resolved]
  - Bronchiectasis [Not Recovered/Not Resolved]
  - Colitis ulcerative [Not Recovered/Not Resolved]
  - Condition aggravated [Not Recovered/Not Resolved]
  - Intentional product use issue [Not Recovered/Not Resolved]
  - Drug ineffective [Not Recovered/Not Resolved]
  - Frequent bowel movements [Not Recovered/Not Resolved]
  - Haematochezia [Not Recovered/Not Resolved]
  - Impaired quality of life [Not Recovered/Not Resolved]
  - Impaired work ability [Not Recovered/Not Resolved]
  - Medication error [Not Recovered/Not Resolved]
  - Off label use [Not Recovered/Not Resolved]
  - Product use in unapproved indication [Not Recovered/Not Resolved]
  - Rectal haemorrhage [Not Recovered/Not Resolved]
  - Steroid dependence [Not Recovered/Not Resolved]
  - Stress [Not Recovered/Not Resolved]
  - Weight decreased [Not Recovered/Not Resolved]
  - Vertigo [Not Recovered/Not Resolved]
  - Tubulointerstitial nephritis [Not Recovered/Not Resolved]
  - Systemic lupus erythematosus [Not Recovered/Not Resolved]
  - Swollen tongue [Not Recovered/Not Resolved]
  - Rhinitis [Not Recovered/Not Resolved]
  - Rash [Not Recovered/Not Resolved]
  - Pyrexia [Not Recovered/Not Resolved]
  - Nightmare [Not Recovered/Not Resolved]
  - Parosmia [Not Recovered/Not Resolved]
  - Eczema [Not Recovered/Not Resolved]
  - Headache [Not Recovered/Not Resolved]
  - Pain [Not Recovered/Not Resolved]
  - Pain in extremity [Not Recovered/Not Resolved]
  - Pulmonary embolism [Not Recovered/Not Resolved]
  - Arthritis [Not Recovered/Not Resolved]
  - Burns second degree [Not Recovered/Not Resolved]
  - Cardiac murmur [Not Recovered/Not Resolved]
  - Catarrh [Not Recovered/Not Resolved]
  - Depression [Not Recovered/Not Resolved]
  - Dysgeusia [Not Recovered/Not Resolved]
  - Fatigue [Not Recovered/Not Resolved]
  - Hypopnoea [Not Recovered/Not Resolved]
  - Palpitations [Not Recovered/Not Resolved]
  - Accidental overdose [Not Recovered/Not Resolved]
  - COVID-19 [Not Recovered/Not Resolved]
  - Confusional state [Not Recovered/Not Resolved]
  - Gingival pain [Not Recovered/Not Resolved]
  - Somnolence [Not Recovered/Not Resolved]
  - Deep vein thrombosis [Not Recovered/Not Resolved]
  - Alcohol poisoning [Not Recovered/Not Resolved]
  - Colitis ulcerative [Not Recovered/Not Resolved]
  - Migraine [Not Recovered/Not Resolved]
  - Tinnitus [Not Recovered/Not Resolved]
  - Adverse drug reaction [Not Recovered/Not Resolved]
  - Loss of personal independence in daily activities [Not Recovered/Not Resolved]
  - Rash [Not Recovered/Not Resolved]
